FAERS Safety Report 6702349-6 (Version None)
Quarter: 2010Q2

REPORT INFORMATION
  Report Type: 
  Country: None (occurrence: None)
  Receive Date: 20100429
  Receipt Date: 20100423
  Transmission Date: 20101027
  Serious: Yes (Death, Hospitalization)
  Sender: FDA-Public Use
  Company Number: US-GENZYME-FABR-1000743

PATIENT
  Sex: Male
  Weight: 60 kg

DRUGS (3)
  1. FABRAZYME [Suspect]
     Indication: FABRY'S DISEASE
     Dosage: 30 MG, UNK
     Route: 042
     Dates: start: 20091201, end: 20100101
  2. FABRAZYME [Suspect]
     Dosage: 60 MG, Q2W
     Route: 042
     Dates: start: 20050215
  3. REPLAGAL [Suspect]
     Indication: FABRY'S DISEASE
     Dosage: UNK
     Route: 042
     Dates: start: 20100224, end: 20100224

REACTIONS (4)
  - CARDIAC FAILURE [None]
  - CEREBROVASCULAR ACCIDENT [None]
  - DEVICE LEAD DAMAGE [None]
  - HYPOTENSION [None]
